FAERS Safety Report 10429890 (Version 5)
Quarter: 2014Q4

REPORT INFORMATION
  Report Type: Spontaneous
  Country: JP (occurrence: JP)
  Receive Date: 20140904
  Receipt Date: 20141010
  Transmission Date: 20150528
  Serious: Yes (Hospitalization)
  Sender: FDA-Public Use
  Company Number: JP-JNJFOC-20140901694

PATIENT
  Age: 61 Year
  Sex: Female
  Weight: 44 kg

DRUGS (3)
  1. METOLATE [Suspect]
     Active Substance: METHOTREXATE
     Indication: RHEUMATOID ARTHRITIS
     Route: 048
     Dates: start: 20130906, end: 20140801
  2. FOLIAMIN [Concomitant]
     Active Substance: FOLIC ACID
     Indication: RHEUMATOID ARTHRITIS
     Route: 048
     Dates: start: 20130906, end: 20140801
  3. SIMPONI [Suspect]
     Active Substance: GOLIMUMAB
     Indication: RHEUMATOID ARTHRITIS
     Route: 058
     Dates: start: 20140707, end: 20140801

REACTIONS (1)
  - Tuberculosis [Recovering/Resolving]

NARRATIVE: CASE EVENT DATE: 20140801
